FAERS Safety Report 17574119 (Version 1)
Quarter: 2020Q1

REPORT INFORMATION
  Report Type: Spontaneous
  Country: DK (occurrence: DK)
  Receive Date: 20200323
  Receipt Date: 20200323
  Transmission Date: 20200409
  Serious: Yes (Other)
  Sender: FDA-Public Use
  Company Number: DK-ALLERGAN-2012364US

PATIENT
  Sex: Male

DRUGS (1)
  1. MESALAZINE UNK [Suspect]
     Active Substance: MESALAMINE
     Indication: COLITIS ULCERATIVE
     Dosage: 800 MG, QID
     Route: 048
     Dates: start: 20180518, end: 20190812

REACTIONS (4)
  - Abdominal pain [Recovered/Resolved]
  - Depressed mood [Unknown]
  - Pancreas infection [Unknown]
  - Mood swings [Unknown]

NARRATIVE: CASE EVENT DATE: 201903
